FAERS Safety Report 8762598 (Version 1)
Quarter: 2012Q4

REPORT INFORMATION
  Report Type: 
  Country: FR (occurrence: FR)
  Receive Date: 20120830
  Receipt Date: 20120830
  Transmission Date: 20130627
  Serious: Yes (Life-Threatening)
  Sender: FDA-Public Use
  Company Number: FR-BAXTER-2012BAX014994

PATIENT
  Age: 47 Year
  Sex: Male

DRUGS (3)
  1. ENDOXAN 2000 MG, LYOPHILISAT POUR SOLUTION INJECTABLE [Suspect]
     Indication: STEM CELL TRANSPLANT
     Route: 042
     Dates: start: 20120803, end: 20120804
  2. MELPHALAN [Concomitant]
     Indication: STEM CELL TRANSPLANT
     Route: 065
  3. CYTARABINE [Concomitant]
     Indication: STEM CELL TRANSPLANT
     Route: 065

REACTIONS (2)
  - Cardiac disorder [Not Recovered/Not Resolved]
  - Pyrexia [Not Recovered/Not Resolved]
